FAERS Safety Report 8535726-1 (Version None)
Quarter: 2012Q3

REPORT INFORMATION
  Report Type: 
  Country: None (occurrence: None)
  Receive Date: 20120725
  Receipt Date: 20120720
  Transmission Date: 20120928
  Serious: No
  Sender: FDA-Public Use
  Company Number: US-PFIZER INC-2012087974

PATIENT
  Sex: Female
  Weight: 67.12 kg

DRUGS (10)
  1. HYDROCHLOROTHIAZIDE [Concomitant]
     Dosage: UNK
  2. HYDROCODONE [Concomitant]
     Indication: BREAKTHROUGH PAIN
     Dosage: 10 MG, UNK
  3. TYLENOL [Concomitant]
     Dosage: UNK
  4. MS CONTIN [Concomitant]
     Dosage: 15 MG, 2X/DAY
  5. SUTENT [Suspect]
     Indication: METASTATIC RENAL CELL CARCINOMA
     Dosage: 50 MG, 1 CAPSULE DAILY, (CYCLE 4 WEEKS ON AND 2 OFF)
     Route: 048
     Dates: start: 20120209, end: 20120531
  6. ZOFRAN [Concomitant]
     Dosage: UNK, AS NEEDED
  7. LORAZEPAM [Concomitant]
     Indication: ANXIETY
     Dosage: 0.5 MG, AS NEEDED
  8. LOSARTAN [Concomitant]
     Dosage: UNK
  9. FOLIC ACID [Concomitant]
     Dosage: UNK
  10. MEGACE [Concomitant]
     Dosage: UNK

REACTIONS (20)
  - EARLY SATIETY [None]
  - MUSCULOSKELETAL CHEST PAIN [None]
  - DISEASE PROGRESSION [None]
  - METASTATIC RENAL CELL CARCINOMA [None]
  - GINGIVAL BLEEDING [None]
  - BACK PAIN [None]
  - FLUID INTAKE REDUCED [None]
  - SKIN FISSURES [None]
  - ABDOMINAL DISCOMFORT [None]
  - GASTROOESOPHAGEAL REFLUX DISEASE [None]
  - SKIN DISCOLOURATION [None]
  - BODY TEMPERATURE INCREASED [None]
  - NAUSEA [None]
  - CONSTIPATION [None]
  - BONE PAIN [None]
  - WEIGHT DECREASED [None]
  - ERUCTATION [None]
  - HAIR COLOUR CHANGES [None]
  - FATIGUE [None]
  - ALOPECIA [None]
